FAERS Safety Report 15160594 (Version 2)
Quarter: 2018Q3

REPORT INFORMATION
  Report Type: Spontaneous
  Country: US (occurrence: US)
  Receive Date: 20180718
  Receipt Date: 20180827
  Transmission Date: 20181010
  Serious: No
  Sender: FDA-Public Use
  Company Number: US-MYLANLABS-2018M1047991

PATIENT
  Age: 62 Year
  Sex: Male

DRUGS (1)
  1. TEMAZEPAM CAPSULES USP [Suspect]
     Active Substance: TEMAZEPAM
     Indication: INSOMNIA
     Dosage: UNK
     Route: 048

REACTIONS (4)
  - Withdrawal syndrome [Unknown]
  - Anxiety [Unknown]
  - Somnambulism [Unknown]
  - Wrong technique in product usage process [Unknown]
